FAERS Safety Report 13555823 (Version 1)
Quarter: 2017Q2

REPORT INFORMATION
  Report Type: Spontaneous
  Country: US (occurrence: US)
  Receive Date: 20170517
  Receipt Date: 20170517
  Transmission Date: 20170830
  Serious: Yes (Life-Threatening, Hospitalization)
  Sender: FDA-Public Use
  Company Number: US-UNITED THERAPEUTICS-UNT-2017-007022

PATIENT
  Age: 54 Year
  Sex: Female
  Weight: 127.89 kg

DRUGS (1)
  1. REMODULIN [Suspect]
     Active Substance: TREPROSTINIL
     Indication: PULMONARY ARTERIAL HYPERTENSION
     Dosage: 0.010 ?G/KG, CONTINUING
     Route: 058
     Dates: start: 20170412

REACTIONS (3)
  - Acute respiratory failure [Unknown]
  - Left ventricular failure [Unknown]
  - Right ventricular failure [Unknown]

NARRATIVE: CASE EVENT DATE: 20170505
